FAERS Safety Report 5216913-7 (Version None)
Quarter: 2007Q1

REPORT INFORMATION
  Report Type: 
  Country: None (occurrence: None)
  Receive Date: 20070119
  Receipt Date: 20070111
  Transmission Date: 20070707
  Serious: Yes (Life-Threatening)
  Sender: FDA-Public Use
  Company Number: 200701AGG00560

PATIENT
  Age: 53 Year
  Sex: Female

DRUGS (3)
  1. AGGRASTAT (AGGRASTAT (TIROFIBAN HCL)) 0.7ML [Suspect]
     Indication: ACUTE MYOCARDIAL INFARCTION
     Dosage: (INTRAVENOUS (NOT OTHERWISE SPECIFIED)
     Route: 042
     Dates: start: 20070107, end: 20070107
  2. ASPIRIN [Concomitant]
  3. CLOPIDOGREL BISULFATE [Concomitant]

REACTIONS (1)
  - THROMBOSIS IN DEVICE [None]
